FAERS Safety Report 22023209 (Version 1)
Quarter: 2023Q1

REPORT INFORMATION
  Report Type: Report from Study
  Country: US (occurrence: US)
  Receive Date: 20230223
  Receipt Date: 20230223
  Transmission Date: 20230418
  Serious: Yes (Other)
  Sender: FDA-Public Use
  Company Number: US-ABBVIE-4315171

PATIENT
  Age: 44 Year
  Sex: Female

DRUGS (1)
  1. RINVOQ [Suspect]
     Active Substance: UPADACITINIB
     Indication: Rheumatoid arthritis
     Route: 048
     Dates: start: 20230111

REACTIONS (3)
  - Post procedural complication [Recovering/Resolving]
  - Sinus operation [Recovering/Resolving]
  - Cerebrospinal fluid leakage [Recovering/Resolving]

NARRATIVE: CASE EVENT DATE: 20230203
